FAERS Safety Report 10450811 (Version 1)
Quarter: 2014Q3

REPORT INFORMATION
  Report Type: Spontaneous
  Country: FR (occurrence: FR)
  Receive Date: 20140912
  Receipt Date: 20140912
  Transmission Date: 20150326
  Serious: Yes (Life-Threatening, Hospitalization)
  Sender: FDA-Public Use
  Company Number: FR-ASTRAZENECA-2014SE66982

PATIENT
  Age: 21167 Day
  Sex: Male
  Weight: 75 kg

DRUGS (10)
  1. AMIKLIN [Concomitant]
     Active Substance: AMIKACIN SULFATE
     Dates: start: 20140116, end: 20140121
  2. AMIKLIN [Concomitant]
     Active Substance: AMIKACIN SULFATE
     Dates: start: 20140207, end: 20140212
  3. PIPERACILLINE PANPHARMA [Suspect]
     Active Substance: PIPERACILLIN SODIUM
     Indication: INFECTION
     Route: 042
     Dates: start: 20140209, end: 20140220
  4. TAZOCILLINE [Concomitant]
     Active Substance: PIPERACILLIN SODIUM\TAZOBACTAM SODIUM
     Dates: start: 20140120, end: 20140129
  5. AUGMENTIN [Concomitant]
     Active Substance: AMOXICILLIN\CLAVULANATE POTASSIUM
     Dates: start: 20140130, end: 20140131
  6. VANCOMYCINE MYLAN [Suspect]
     Active Substance: VANCOMYCIN
     Indication: INFECTION
     Route: 042
     Dates: start: 20140130, end: 20140224
  7. INEXIUM [Suspect]
     Active Substance: ESOMEPRAZOLE
     Indication: GASTRODUODENAL ULCER
     Route: 048
     Dates: start: 20140311
  8. INEXIUM [Suspect]
     Active Substance: ESOMEPRAZOLE
     Indication: GASTRODUODENAL ULCER
     Route: 048
     Dates: start: 20140110, end: 20140220
  9. CEFTAZIDIME. [Concomitant]
     Active Substance: CEFTAZIDIME
     Dates: start: 20140116, end: 20140121
  10. DORIPENEM [Concomitant]
     Active Substance: DORIPENEM
     Dates: start: 20140207, end: 20140209

REACTIONS (15)
  - Acute coronary syndrome [Unknown]
  - Pneumonia pseudomonal [Unknown]
  - Acute pulmonary oedema [Recovered/Resolved]
  - Enterococcal infection [Unknown]
  - Agranulocytosis [Recovered/Resolved]
  - Infection [Unknown]
  - Cardiogenic shock [Unknown]
  - Enterococcus test positive [Unknown]
  - White blood cell count decreased [Unknown]
  - Febrile neutropenia [Unknown]
  - Lung infection [Unknown]
  - Bacteraemia [Unknown]
  - Haemoglobin decreased [Unknown]
  - Lymphopenia [Unknown]
  - Cardiac arrest [Unknown]

NARRATIVE: CASE EVENT DATE: 20140117
